FAERS Safety Report 20757682 (Version 1)
Quarter: 2022Q2

REPORT INFORMATION
  Report Type: Spontaneous
  Country: None (occurrence: US)
  Receive Date: 20220427
  Receipt Date: 20220427
  Transmission Date: 20220721
  Serious: Yes (Other)
  Sender: FDA-Public Use
  Company Number: US-Imprimis NJOF-2128199

PATIENT

DRUGS (1)
  1. MOXIFLOXACIN\TRIAMCINOLONE [Suspect]
     Active Substance: MOXIFLOXACIN\TRIAMCINOLONE

REACTIONS (1)
  - Inflammation [Unknown]
